FAERS Safety Report 9857464 (Version 3)
Quarter: 2017Q1

REPORT INFORMATION
  Report Type: Report from Study
  Country: US (occurrence: US)
  Receive Date: 20140131
  Receipt Date: 20170111
  Transmission Date: 20170429
  Serious: Yes (Hospitalization)
  Sender: FDA-Public Use
  Company Number: US-ROCHE-1341789

PATIENT
  Age: 61 Year
  Sex: Male
  Weight: 73 kg

DRUGS (12)
  1. ALBUTEROL SULFATE. [Concomitant]
     Active Substance: ALBUTEROL SULFATE
     Dosage: INHALE 2 PUFF BY INHALATION ROUTE EVERY FOUR HOUR AS NEEDED FOR 30 DAYS
     Route: 065
     Dates: start: 20121219
  2. OMEPRAZOLE. [Concomitant]
     Active Substance: OMEPRAZOLE
     Dosage: BEFORE MEAL
     Route: 048
     Dates: start: 20121219
  3. AZITHROMYCIN ANHYDROUS. [Concomitant]
     Active Substance: AZITHROMYCIN ANHYDROUS
     Dosage: AT BEDTIME
     Route: 048
  4. XOLAIR [Suspect]
     Active Substance: OMALIZUMAB
     Indication: ASTHMA
     Route: 058
  5. TESSALON [Concomitant]
     Active Substance: BENZONATATE
  6. TORADOL [Suspect]
     Active Substance: KETOROLAC TROMETHAMINE
     Indication: PRODUCT USED FOR UNKNOWN INDICATION
     Route: 065
  7. ADVAIR HFA [Concomitant]
     Active Substance: FLUTICASONE PROPIONATE\SALMETEROL XINAFOATE
     Dosage: 250-50 MCG
     Route: 065
     Dates: start: 20130208
  8. ALBUTEROL SULFATE. [Concomitant]
     Active Substance: ALBUTEROL SULFATE
     Dosage: 2.5 MG/3 ML (0.083%)
     Route: 065
     Dates: start: 20120326
  9. SINGULAIR [Concomitant]
     Active Substance: MONTELUKAST SODIUM
     Dosage: AT BEDTIME FOR 30 DAYS
     Route: 048
     Dates: start: 20131226
  10. XOLAIR [Suspect]
     Active Substance: OMALIZUMAB
     Route: 058
  11. PREDNISONE. [Concomitant]
     Active Substance: PREDNISONE
     Route: 048
  12. ADVAIR HFA [Concomitant]
     Active Substance: FLUTICASONE PROPIONATE\SALMETEROL XINAFOATE
     Dosage: 500-50 MCG INHLAE 1 PUFF
     Route: 065
     Dates: start: 20121219

REACTIONS (9)
  - Wheezing [Unknown]
  - Cough [Unknown]
  - Hypersensitivity [Unknown]
  - Chest pain [Unknown]
  - Myalgia [Unknown]
  - Dyspnoea [Unknown]
  - Chest discomfort [Unknown]
  - Loss of consciousness [Unknown]
  - Arthralgia [Unknown]

NARRATIVE: CASE EVENT DATE: 20131107
